FAERS Safety Report 8872023 (Version 1)
Quarter: 2012Q4

REPORT INFORMATION
  Report Type: 
  Country: US (occurrence: US)
  Receive Date: 20121026
  Receipt Date: 20121026
  Transmission Date: 20130627
  Serious: No
  Sender: FDA-Public Use
  Company Number: US-AMGEN-USASP2012048664

PATIENT
  Sex: Female

DRUGS (8)
  1. ENBREL [Suspect]
     Indication: PRODUCT USED FOR UNKNOWN INDICATION
     Dosage: 50 mg/ml, qwk
     Route: 058
  2. CENTRUM /02217401/ [Concomitant]
     Dosage: UNK
  3. HYZAAR [Concomitant]
     Dosage: 100/12.5 mg
  4. BENADRYL                           /00000402/ [Concomitant]
     Dosage: 25 mg, UNK
  5. LOVASTATIN [Concomitant]
     Dosage: 10 mg, UNK
  6. ADVIL                              /00044201/ [Concomitant]
     Dosage: 200 mg, UNK
  7. ZINC [Concomitant]
     Dosage: 30 mg, UNK
  8. CRANBERRY                          /01512301/ [Concomitant]
     Dosage: UNK

REACTIONS (1)
  - Dysgeusia [Unknown]
